FAERS Safety Report 13486448 (Version 1)
Quarter: 2017Q2

REPORT INFORMATION
  Report Type: Spontaneous
  Country: US (occurrence: US)
  Receive Date: 20170426
  Receipt Date: 20170426
  Transmission Date: 20170830
  Serious: No
  Sender: FDA-Public Use
  Company Number: US-009507513-1704USA012069

PATIENT
  Age: 44 Year
  Sex: Female
  Weight: 74.83 kg

DRUGS (1)
  1. NUVARING [Suspect]
     Active Substance: ETHINYL ESTRADIOL\ETONOGESTREL
     Indication: CONTRACEPTION
     Dosage: ONE RING, 3 WEEKS INSIDE THEN 1 WEEK BREAK
     Route: 067
     Dates: start: 20170412

REACTIONS (3)
  - Inappropriate schedule of drug administration [Unknown]
  - Muscle spasms [Not Recovered/Not Resolved]
  - Menstruation delayed [Unknown]
